FAERS Safety Report 19916965 (Version 1)
Quarter: 2021Q4

REPORT INFORMATION
  Report Type: Spontaneous
  Country: US (occurrence: US)
  Receive Date: 20211005
  Receipt Date: 20211005
  Transmission Date: 20220303
  Serious: No
  Sender: FDA-Public Use
  Company Number: US-DRREDDYS-SPO/USA/21/0140484

PATIENT
  Age: 89 Year
  Weight: 62.55 kg

DRUGS (1)
  1. CIPROFLOXACIN AND DEXAMETHASONE [Suspect]
     Active Substance: CIPROFLOXACIN HYDROCHLORIDE\DEXAMETHASONE
     Indication: Excessive cerumen production
     Dosage: CIPROFLOXACIN 0.3% AND DEXAMETHASONE 0.1% OTIC SUSPENSION

REACTIONS (3)
  - Product packaging issue [Unknown]
  - Product use in unapproved indication [Unknown]
  - Treatment delayed [Unknown]
